FAERS Safety Report 9345760 (Version 5)
Quarter: 2013Q3

REPORT INFORMATION
  Report Type: Spontaneous
  Country: US (occurrence: US)
  Receive Date: 20130613
  Receipt Date: 20130805
  Transmission Date: 20140515
  Serious: Yes (Hospitalization)
  Sender: FDA-Public Use
  Company Number: US-PFIZER INC-2013177258

PATIENT
  Age: 77 Year
  Sex: Male
  Weight: 102.97 kg

DRUGS (15)
  1. SUTENT [Suspect]
     Indication: METASTATIC RENAL CELL CARCINOMA
     Dosage: 50 MG, 1X/DAY, CYCLIC, 4 WEEKS ON AND 2 WEEKS OFF
     Route: 048
     Dates: start: 20130515, end: 20130604
  2. SUTENT [Suspect]
     Indication: LUNG NEOPLASM MALIGNANT
     Dosage: 50 MG, 1X/DAY, 4 WEEKS ON AND 2 WEEKS OFF (28 DAYS CYCLE)
     Route: 048
     Dates: start: 20130608, end: 20130702
  3. SUTENT [Suspect]
     Indication: RENAL CELL CARCINOMA
     Dosage: 37.5 MG, CYCLIC
     Route: 048
     Dates: start: 20130703
  4. SUTENT [Suspect]
     Dosage: UNK
     Dates: start: 20130606
  5. SUTENT [Suspect]
     Dosage: 37.5 MG, CYCLIC
  6. FINASTERIDE [Concomitant]
     Dosage: UNK
  7. LOSARTAN [Concomitant]
     Dosage: UNK
  8. ZOFRAN [Concomitant]
     Dosage: UNK
  9. ZANTAC [Concomitant]
     Dosage: UNK
  10. FLOMAX [Concomitant]
     Dosage: UNK
  11. VITAMIN D [Concomitant]
     Dosage: UNK
  12. COUMADIN [Concomitant]
     Dosage: UNK
  13. BABY ASPIRIN [Concomitant]
     Dosage: UNK
  14. FISH OIL [Concomitant]
     Dosage: UNK
  15. INSULIN [Concomitant]
     Indication: DIABETES MELLITUS
     Dosage: UNK, AS NEEDED

REACTIONS (20)
  - Blood pressure increased [Recovered/Resolved]
  - Blood glucose increased [Recovered/Resolved]
  - Nausea [Recovered/Resolved]
  - Vomiting [Recovered/Resolved]
  - Decreased appetite [Not Recovered/Not Resolved]
  - Oral pain [Unknown]
  - Back pain [Unknown]
  - Asthenia [Unknown]
  - Dysgeusia [Unknown]
  - Swollen tongue [Unknown]
  - Glossodynia [Unknown]
  - Fatigue [Unknown]
  - Weight decreased [Unknown]
  - Muscular weakness [Unknown]
  - Fall [Unknown]
  - Hypoglycaemia [Recovered/Resolved]
  - Hypertension [Unknown]
  - Off label use [Unknown]
  - Heart rate decreased [Unknown]
  - Weight decreased [Unknown]
